FAERS Safety Report 23067472 (Version 1)
Quarter: 2023Q4

REPORT INFORMATION
  Report Type: Spontaneous
  Country: NO (occurrence: NO)
  Receive Date: 20231016
  Receipt Date: 20231016
  Transmission Date: 20240110
  Serious: Yes (Disabling)
  Sender: FDA-Public Use
  Company Number: None

PATIENT
  Age: 56 Year
  Sex: Female

DRUGS (3)
  1. WEGOVY [Suspect]
     Active Substance: SEMAGLUTIDE
     Indication: Obesity
     Dosage: 1.7 MG, QW
     Route: 058
     Dates: start: 20230329
  2. WEGOVY [Suspect]
     Active Substance: SEMAGLUTIDE
     Indication: Hyperlipidaemia
  3. ATORVASTATIN XIROMED [Concomitant]
     Indication: Hypercholesterolaemia
     Dosage: 40 MG, QD
     Dates: start: 20220708

REACTIONS (2)
  - Hyperaesthesia [Not Recovered/Not Resolved]
  - Pain of skin [Not Recovered/Not Resolved]

NARRATIVE: CASE EVENT DATE: 20230101
